FAERS Safety Report 8998369 (Version 1)
Quarter: 2013Q1

REPORT INFORMATION
  Report Type: Spontaneous
  Country: US (occurrence: US)
  Receive Date: 20130105
  Receipt Date: 20130105
  Transmission Date: 20140127
  Serious: No
  Sender: FDA-Public Use
  Company Number: US-JNJFOC-20121204435

PATIENT
  Age: 39 Year
  Sex: Female

DRUGS (3)
  1. INVEGA [Suspect]
     Indication: SCHIZOPHRENIA
     Route: 048
     Dates: start: 20121119, end: 20121226
  2. INVEGA [Suspect]
     Indication: SCHIZOPHRENIA
     Route: 048
     Dates: start: 20121227
  3. INVEGA [Suspect]
     Indication: SCHIZOPHRENIA
     Route: 048
     Dates: start: 2010

REACTIONS (4)
  - Musculoskeletal chest pain [Unknown]
  - Abdominal rigidity [Unknown]
  - Rash pruritic [Unknown]
  - Drug dose omission [Unknown]
